FAERS Safety Report 22263717 (Version 1)
Quarter: 2023Q2

REPORT INFORMATION
  Report Type: Spontaneous
  Country: IN (occurrence: IN)
  Receive Date: 20230428
  Receipt Date: 20230428
  Transmission Date: 20230722
  Serious: Yes (Other)
  Sender: FDA-Public Use
  Company Number: IN-SUN PHARMACEUTICAL INDUSTRIES LTD-2023R1-386674

PATIENT
  Age: 54 Year
  Sex: Male

DRUGS (1)
  1. METFORMIN\SITAGLIPTIN PHOSPHATE [Suspect]
     Active Substance: METFORMIN\SITAGLIPTIN PHOSPHATE
     Indication: Diabetes mellitus
     Dosage: UNK UNK, BID
     Route: 048
     Dates: start: 20220905, end: 20230414

REACTIONS (1)
  - Trigger finger [Not Recovered/Not Resolved]
